FAERS Safety Report 4319291-0 (Version None)
Quarter: 2004Q1

REPORT INFORMATION
  Report Type: 
  Country: None (occurrence: None)
  Receive Date: 20040318
  Receipt Date: 20040318
  Transmission Date: 20041129
  Serious: Yes (Disabling)
  Sender: FDA-Public Use
  Company Number: None

PATIENT
  Age: 78 Year
  Sex: Male
  Weight: 85 kg

DRUGS (17)
  1. GEMFIBROZIL [Suspect]
     Indication: CORONARY ARTERY DISEASE
     Dosage: 300 MG BID ORAL
     Route: 048
     Dates: start: 20030903, end: 20031003
  2. GEMFIBROZIL [Suspect]
     Indication: DIABETES MELLITUS NON-INSULIN-DEPENDENT
     Dosage: 300 MG BID ORAL
     Route: 048
     Dates: start: 20030903, end: 20031003
  3. GEMFIBROZIL [Suspect]
     Indication: HYPERLIPIDAEMIA
     Dosage: 300 MG BID ORAL
     Route: 048
     Dates: start: 20030903, end: 20031003
  4. ALLOPURINOL [Concomitant]
  5. CLOPIDOGREL [Concomitant]
  6. DONEPEZIL [Concomitant]
  7. GLIPIZIDE [Concomitant]
  8. LORATADINE [Concomitant]
  9. NITROGLYCERIN [Concomitant]
  10. PAROXETINE HCL [Concomitant]
  11. RABEPRAZOLE SODIUM [Concomitant]
  12. SALSALATE [Concomitant]
  13. SIMVASTATIN [Concomitant]
  14. TAMULOSIN [Concomitant]
  15. DETROL LA [Concomitant]
  16. ASPIRIN [Concomitant]
  17. FOSINOPRIL SODIUM [Concomitant]

REACTIONS (2)
  - BLOOD CREATINE PHOSPHOKINASE INCREASED [None]
  - MYALGIA [None]
